FAERS Safety Report 20594655 (Version 1)
Quarter: 2022Q1

REPORT INFORMATION
  Report Type: Spontaneous
  Country: US (occurrence: None)
  Receive Date: 20220314
  Receipt Date: 20220314
  Transmission Date: 20220424
  Serious: Yes (Hospitalization, Other)
  Sender: FDA-Public Use
  Company Number: None

PATIENT
  Age: 82 Year
  Sex: Female

DRUGS (1)
  1. SUNITINIB [Suspect]
     Active Substance: SUNITINIB
     Indication: Gastrointestinal stromal tumour
     Dosage: OTHER FREQUENCY : DAILY DAYS 1-28;?
     Route: 048
     Dates: start: 202011

REACTIONS (4)
  - Weight increased [None]
  - Hypertension [None]
  - Hypotension [None]
  - Fall [None]

NARRATIVE: CASE EVENT DATE: 20220101
